FAERS Safety Report 6197073-5 (Version None)
Quarter: 2009Q2

REPORT INFORMATION
  Report Type: 
  Country: None (occurrence: None)
  Receive Date: 20090520
  Receipt Date: 20090515
  Transmission Date: 20091009
  Serious: Yes (Other)
  Sender: FDA-Public Use
  Company Number: BR-SANOFI-SYNTHELABO-A01200905170

PATIENT
  Sex: Female
  Weight: 56 kg

DRUGS (3)
  1. AROTIN [Concomitant]
     Indication: ANXIETY
     Dosage: 10 MG
     Route: 048
     Dates: start: 20090508
  2. ZOLPIDEM TARTRATE [Suspect]
     Indication: INSOMNIA
     Dosage: 1 UNIT
     Route: 048
     Dates: start: 20090508
  3. RIVOTRIL [Concomitant]
     Indication: ANXIETY
     Route: 065

REACTIONS (5)
  - CHEST PAIN [None]
  - CRYING [None]
  - DELIRIUM [None]
  - FEELING ABNORMAL [None]
  - SOMNOLENCE [None]
